FAERS Safety Report 20878753 (Version 1)
Quarter: 2022Q2

REPORT INFORMATION
  Report Type: Spontaneous
  Country: US (occurrence: US)
  Receive Date: 20220526
  Receipt Date: 20220526
  Transmission Date: 20220721
  Serious: Yes (Other)
  Sender: FDA-Public Use
  Company Number: US-BRISTOL-MYERS SQUIBB COMPANY-2022-044457

PATIENT
  Age: 74 Year
  Sex: Male
  Weight: 69.85 kg

DRUGS (1)
  1. ELIQUIS [Suspect]
     Active Substance: APIXABAN
     Indication: Thrombosis prophylaxis
     Dosage: DOSE : UNAVAILABLE;     FREQ : TWO TIMES A DAY
     Route: 065

REACTIONS (3)
  - Pain [Unknown]
  - Haemorrhage [Unknown]
  - Tooth infection [Unknown]

NARRATIVE: CASE EVENT DATE: 20220419
